FAERS Safety Report 16445824 (Version 2)
Quarter: 2020Q3

REPORT INFORMATION
  Report Type: Spontaneous
  Country: ES (occurrence: ES)
  Receive Date: 20190618
  Receipt Date: 20200727
  Transmission Date: 20201102
  Serious: Yes (Death, Life-Threatening, Other)
  Sender: FDA-Public Use
  Company Number: ES-MYLANLABS-2019M1056010

PATIENT
  Sex: Female

DRUGS (2)
  1. PEDEA [Suspect]
     Active Substance: IBUPROFEN
     Indication: PATENT DUCTUS ARTERIOSUS REPAIR
     Dosage: 1 UNK, CYCLE (1 CYCLICAL)
     Route: 065
  2. PEDEA [Suspect]
     Active Substance: IBUPROFEN
     Indication: PATENT DUCTUS ARTERIOSUS
     Dosage: UNK
     Route: 042

REACTIONS (4)
  - Necrotising colitis [Fatal]
  - Drug ineffective [Unknown]
  - Intraventricular haemorrhage [Fatal]
  - Underdose [Recovered/Resolved]
